FAERS Safety Report 4825806-6 (Version None)
Quarter: 2005Q4

REPORT INFORMATION
  Report Type: 
  Country: None (occurrence: None)
  Receive Date: 20051111
  Receipt Date: 20051108
  Transmission Date: 20060501
  Serious: Yes (Hospitalization)
  Sender: FDA-Public Use
  Company Number: FR-GLAXOSMITHKLINE-B0399899A

PATIENT
  Age: 48 Year
  Sex: Male
  Weight: 78 kg

DRUGS (3)
  1. AUGMENTIN '125' [Suspect]
     Indication: ANTIBIOTIC PROPHYLAXIS
     Dosage: 2G SINGLE DOSE
     Route: 042
     Dates: start: 20051005, end: 20051005
  2. DIPRIVAN [Suspect]
     Dosage: 400MG SINGLE DOSE
     Route: 042
     Dates: start: 20051005, end: 20051005
  3. SUFENTA [Suspect]
     Dosage: 15MCG SINGLE DOSE
     Route: 042
     Dates: start: 20051005, end: 20051005

REACTIONS (5)
  - ANAPHYLACTIC SHOCK [None]
  - HYPOCAPNIA [None]
  - HYPOTENSION [None]
  - TACHYCARDIA [None]
  - URTICARIA GENERALISED [None]
